FAERS Safety Report 18899512 (Version 1)
Quarter: 2021Q1

REPORT INFORMATION
  Report Type: Spontaneous
  Country: CN (occurrence: CN)
  Receive Date: 20210216
  Receipt Date: 20210216
  Transmission Date: 20210420
  Serious: Yes (Other)
  Sender: FDA-Public Use
  Company Number: CN-PFIZER INC-2021123094

PATIENT
  Age: 86 Year
  Sex: Male
  Weight: 65 kg

DRUGS (7)
  1. LIPITOR [Suspect]
     Active Substance: ATORVASTATIN CALCIUM
     Indication: LIPIDS INCREASED
     Dosage: 20 MG, 1X/DAY
     Route: 048
     Dates: start: 20201207, end: 20210113
  2. INDOBUFEN [Suspect]
     Active Substance: INDOBUFEN
     Indication: ANTIPLATELET THERAPY
     Dosage: 0.2 G, 1X/DAY
     Route: 048
     Dates: start: 20201207, end: 20210113
  3. YU ER [Concomitant]
     Indication: GASTROINTESTINAL DISORDER PROPHYLAXIS
     Dosage: 1 DF, 2X/DAY
     Route: 048
     Dates: start: 20210108, end: 20210109
  4. LIAN HUA QING WEN [Concomitant]
     Indication: NASOPHARYNGITIS
     Dosage: 6 G, 3X/DAY
     Route: 048
     Dates: start: 20210108, end: 20210109
  5. NICORANDIL [Suspect]
     Active Substance: NICORANDIL
     Indication: HYPERTENSION
     Dosage: 5 MG, 3X/DAY
     Route: 048
     Dates: start: 20201207, end: 20210113
  6. ARCOXIA [Concomitant]
     Active Substance: ETORICOXIB
     Indication: ANALGESIC THERAPY
     Dosage: 30 MG, 1X/DAY
     Route: 048
     Dates: start: 20210108, end: 20210109
  7. VASOREL [Suspect]
     Active Substance: TRIMETAZIDINE DIHYDROCHLORIDE
     Indication: CORONARY ARTERY DISEASE
     Dosage: 85 MG, 2X/DAY
     Route: 048
     Dates: start: 20201207, end: 20210113

REACTIONS (2)
  - Rash erythematous [Recovering/Resolving]
  - Pyrexia [Recovered/Resolved]

NARRATIVE: CASE EVENT DATE: 20210108
